FAERS Safety Report 9694433 (Version 8)
Quarter: 2014Q3

REPORT INFORMATION
  Report Type: Report from Study
  Country: CA (occurrence: CA)
  Receive Date: 20131118
  Receipt Date: 20140901
  Transmission Date: 20150326
  Serious: Yes (Death, Hospitalization, Other)
  Sender: FDA-Public Use
  Company Number: CA-ROCHE-1303199

PATIENT
  Age: 47 Year
  Sex: Male
  Weight: 130 kg

DRUGS (1)
  1. AVASTIN [Suspect]
     Active Substance: BEVACIZUMAB
     Indication: GLIOBLASTOMA
     Route: 042
     Dates: start: 20131011, end: 2014

REACTIONS (11)
  - Malignant neoplasm progression [Fatal]
  - Blood pressure fluctuation [Not Recovered/Not Resolved]
  - Paresis [Not Recovered/Not Resolved]
  - Muscular weakness [Not Recovered/Not Resolved]
  - Pain [Unknown]
  - Fall [Unknown]
  - Disease progression [Unknown]
  - Somnolence [Unknown]
  - Hypotension [Not Recovered/Not Resolved]
  - Discomfort [Unknown]
  - Blood pressure increased [Unknown]

NARRATIVE: CASE EVENT DATE: 20131012
